FAERS Safety Report 12471717 (Version 2)
Quarter: 2016Q3

REPORT INFORMATION
  Report Type: Spontaneous
  Country: FR (occurrence: FR)
  Receive Date: 20160616
  Receipt Date: 20160812
  Transmission Date: 20161109
  Serious: Yes (Hospitalization)
  Sender: FDA-Public Use
  Company Number: FR-PFIZER INC-2016294374

PATIENT
  Age: 33 Year
  Sex: Female

DRUGS (3)
  1. CYTOTEC [Suspect]
     Active Substance: MISOPROSTOL
     Indication: ABORTION INDUCED
     Dosage: 400 UG, UNK (TOTAL)
     Route: 048
     Dates: start: 20160404, end: 20160404
  2. MIFEGYNE [Suspect]
     Active Substance: MIFEPRISTONE
     Indication: ABORTION INDUCED
     Dosage: 600 MG, UNK (TOTAL)
     Route: 048
     Dates: start: 20160404, end: 20160404
  3. RIFINAH [Interacting]
     Active Substance: ISONIAZID\RIFAMPIN
     Indication: BONE TUBERCULOSIS
     Dosage: 1 DF, 300 MG/150 MG

REACTIONS (2)
  - Drug interaction [Recovered/Resolved]
  - Drug ineffective for unapproved indication [Recovered/Resolved with Sequelae]

NARRATIVE: CASE EVENT DATE: 20160404
